FAERS Safety Report 7607534-7 (Version None)
Quarter: 2011Q3

REPORT INFORMATION
  Report Type: 
  Country: None (occurrence: None)
  Receive Date: 20110713
  Receipt Date: 20110705
  Transmission Date: 20111222
  Serious: Yes (Hospitalization, Other)
  Sender: FDA-Public Use
  Company Number: BR-BAYER-2011-058392

PATIENT
  Age: 52 Year
  Sex: Male
  Weight: 98 kg

DRUGS (7)
  1. CIPRO XR [Suspect]
     Indication: URINARY TRACT INFECTION
     Dosage: 500 MG, ONCE
     Route: 048
     Dates: start: 20110622, end: 20110622
  2. CIPROFLOXACIN [Suspect]
     Indication: BACTERAEMIA
     Dosage: UNK
     Route: 042
     Dates: start: 20110622, end: 20110701
  3. SIMVASTATIN [Concomitant]
     Indication: BLOOD CHOLESTEROL ABNORMAL
     Dosage: 1 DF, HS
     Route: 048
     Dates: start: 20080101
  4. EUTHYROX [Concomitant]
     Indication: HYPOTHYROIDISM
     Dosage: 1 DF, QD
     Route: 048
     Dates: start: 20070101
  5. CIPRO XR [Suspect]
     Indication: BACTERAEMIA
  6. CIPRO XR [Suspect]
     Indication: KIDNEY INFECTION
     Dosage: 500 MG, QD
     Dates: start: 20110702
  7. TIMOPTOL [Concomitant]
     Indication: GLAUCOMA
     Dosage: 2 GTT, BID
     Route: 047
     Dates: start: 20080101

REACTIONS (6)
  - HEADACHE [None]
  - VOMITING [None]
  - NAUSEA [None]
  - PHLEBITIS INFECTIVE [None]
  - PYREXIA [None]
  - BACTERAEMIA [None]
